FAERS Safety Report 4955738-4 (Version None)
Quarter: 2006Q1

REPORT INFORMATION
  Report Type: 
  Country: None (occurrence: None)
  Receive Date: 20060328
  Receipt Date: 20060124
  Transmission Date: 20060701
  Serious: Yes (Other)
  Sender: FDA-Public Use
  Company Number: US-ROCHE-433367

PATIENT
  Age: 56 Year
  Sex: Male
  Weight: 94.8 kg

DRUGS (7)
  1. PEGASYS [Suspect]
     Dosage: ROUTE REPORTED AS INJ. FREQUENCY REPORTED AS EVERY WEEK.
     Route: 050
     Dates: start: 20051215
  2. RIBAVIRIN [Suspect]
     Route: 048
     Dates: start: 20051215
  3. HYDROCODONE [Concomitant]
     Indication: PAIN
  4. ETODOLAC [Concomitant]
     Indication: PAIN
  5. METFORMIN [Concomitant]
  6. CYCLOBENZAPRINE [Concomitant]
  7. SYNTHROID [Concomitant]
     Indication: HYPOTHYROIDISM

REACTIONS (1)
  - ERECTILE DYSFUNCTION [None]
